FAERS Safety Report 8770728 (Version 1)
Quarter: 2012Q4

REPORT INFORMATION
  Report Type: Report from Study
  Country: CA (occurrence: CA)
  Receive Date: 20120906
  Receipt Date: 20120906
  Transmission Date: 20130627
  Serious: Yes (Hospitalization)
  Sender: FDA-Public Use
  Company Number: CA-JNJFOC-20120813298

PATIENT
  Age: 72 Year
  Sex: Female
  Weight: 132 kg

DRUGS (2)
  1. REMICADE [Suspect]
     Indication: CROHN^S DISEASE
     Dosage: 52 weeks
     Route: 042
  2. ANTIBIOTICS UNSPECIFIED [Concomitant]
     Route: 065

REACTIONS (1)
  - Hospitalisation [Recovering/Resolving]
